FAERS Safety Report 18764107 (Version 2)
Quarter: 2021Q2

REPORT INFORMATION
  Report Type: Spontaneous
  Country: None (occurrence: US)
  Receive Date: 20210120
  Receipt Date: 20210520
  Transmission Date: 20210717
  Serious: Yes (Other)
  Sender: FDA-Public Use
  Company Number: US-GLAXOSMITHKLINE-US2021GSK013272

PATIENT
  Sex: Male

DRUGS (2)
  1. ZANTAC [Suspect]
     Active Substance: RANITIDINE HYDROCHLORIDE
     Indication: GASTRITIS
     Dosage: BOX AND PRESCRIBED DOSAGE|BOTH
     Route: 065
     Dates: start: 200111, end: 201101
  2. ZANTAC [Suspect]
     Active Substance: RANITIDINE HYDROCHLORIDE
     Indication: GASTRITIS
     Dosage: BOX AND PRESCRIBED DOSAGE|BOTH
     Route: 065
     Dates: start: 200111, end: 201101

REACTIONS (1)
  - Prostate cancer [Unknown]
